FAERS Safety Report 4294196-2 (Version None)
Quarter: 2004Q1

REPORT INFORMATION
  Report Type: 
  Country: None (occurrence: None)
  Receive Date: 20040211
  Receipt Date: 20040211
  Transmission Date: 20041129
  Serious: Yes (Life-Threatening, Hospitalization)
  Sender: FDA-Public Use
  Company Number: None

PATIENT
  Age: 44 Year
  Sex: Female
  Weight: 65.7716 kg

DRUGS (10)
  1. PAXIL [Suspect]
     Indication: DEPRESSION
     Dosage: ONE HS
     Dates: start: 19990401
  2. DILANTIN [Concomitant]
  3. PHENOBARBITAL TAB [Concomitant]
  4. ESTRADIAL [Concomitant]
  5. MIDRIN [Concomitant]
  6. HYDROCHLOROTHIAZIDE [Concomitant]
  7. TEMAZEPAM [Concomitant]
  8. TOPAMAX [Concomitant]
  9. VITAMIN CAP [Concomitant]
  10. CALCIUM [Concomitant]

REACTIONS (1)
  - SUICIDE ATTEMPT [None]
